FAERS Safety Report 21976820 (Version 1)
Quarter: 2023Q1

REPORT INFORMATION
  Report Type: Spontaneous
  Country: BR (occurrence: BR)
  Receive Date: 20230210
  Receipt Date: 20230210
  Transmission Date: 20230417
  Serious: Yes (Other)
  Sender: FDA-Public Use
  Company Number: BR-SA-SAC20230208000481

PATIENT
  Sex: Female

DRUGS (3)
  1. ENOXAPARIN SODIUM [Suspect]
     Active Substance: ENOXAPARIN SODIUM
     Indication: Maternal exposure during pregnancy
     Dosage: 70 MG
     Route: 064
  2. ASPIRIN [Suspect]
     Active Substance: ASPIRIN
     Indication: Maternal exposure during pregnancy
     Dosage: 161 MG
     Route: 064
  3. VITAMINS NOS [Suspect]
     Active Substance: VITAMINS
     Indication: Maternal exposure during pregnancy
     Dosage: UNK
     Route: 064

REACTIONS (2)
  - Cardio-respiratory arrest [Recovered/Resolved]
  - Foetal exposure during pregnancy [Recovered/Resolved]
